FAERS Safety Report 4340351-2 (Version None)
Quarter: 2004Q2

REPORT INFORMATION
  Report Type: 
  Country: None (occurrence: None)
  Receive Date: 20040412
  Receipt Date: 20040330
  Transmission Date: 20050107
  Serious: Yes (Other)
  Sender: FDA-Public Use
  Company Number: 2004022100

PATIENT
  Age: 88 Year
  Sex: Female

DRUGS (1)
  1. FELDENE [Suspect]
     Indication: ILL-DEFINED DISORDER
     Dosage: SEVERAL TIMES (DAILY), TOPICAL
     Route: 061

REACTIONS (2)
  - ENCEPHALOPATHY [None]
  - HEPATOCELLULAR DAMAGE [None]
